FAERS Safety Report 12240441 (Version 2)
Quarter: 2016Q2

REPORT INFORMATION
  Report Type: Report from Study
  Country: US (occurrence: US)
  Receive Date: 20160405
  Receipt Date: 20160411
  Transmission Date: 20160815
  Serious: Yes (Death)
  Sender: FDA-Public Use
  Company Number: US-EXELIXIS-CABO-16006076

PATIENT
  Age: 63 Year
  Sex: Female

DRUGS (1)
  1. COMETRIQ [Suspect]
     Active Substance: CABOZANTINIB S-MALATE
     Indication: LUNG NEOPLASM MALIGNANT
     Dosage: 140 MG, QD
     Route: 048
     Dates: start: 20160205, end: 20160304

REACTIONS (7)
  - Haemoptysis [Unknown]
  - Dry mouth [Unknown]
  - Productive cough [Unknown]
  - Plicated tongue [Unknown]
  - Off label use [Unknown]
  - Glossodynia [Unknown]
  - Malignant neoplasm progression [Fatal]

NARRATIVE: CASE EVENT DATE: 20160323
